FAERS Safety Report 8415749-3 (Version None)
Quarter: 2012Q2

REPORT INFORMATION
  Report Type: 
  Country: None (occurrence: None)
  Receive Date: 20120606
  Receipt Date: 20120529
  Transmission Date: 20120825
  Serious: Yes (Other)
  Sender: FDA-Public Use
  Company Number: JP-ASTELLAS-2012JP004515

PATIENT
  Sex: Female

DRUGS (7)
  1. SIGMART [Concomitant]
     Dosage: 6.9 MG, UNKNOWN/D
     Route: 048
  2. AMLODIPINE [Concomitant]
     Dosage: 5 MG, UNKNOWN/D
     Route: 048
  3. NEUQUINON [Concomitant]
     Dosage: UNK
     Route: 048
  4. KALLIDINOGENASE [Concomitant]
     Dosage: UNK
     Route: 048
  5. ROCORNAL [Concomitant]
     Dosage: 300 MG, UNKNOWN/D
     Route: 048
  6. TRICHLORMETHIAZIDE [Concomitant]
     Dosage: UNK
     Route: 048
  7. VESICARE [Suspect]
     Indication: HYPERTONIC BLADDER
     Dosage: 2.5 MG, UNKNOWN/D
     Route: 048
     Dates: start: 20120401, end: 20120515

REACTIONS (1)
  - VENTRICULAR EXTRASYSTOLES [None]
